FAERS Safety Report 10043189 (Version 1)
Quarter: 2014Q1

REPORT INFORMATION
  Report Type: Spontaneous
  Country: US (occurrence: US)
  Receive Date: 20140328
  Receipt Date: 20140328
  Transmission Date: 20141002
  Serious: Yes (Disabling)
  Sender: FDA-Public Use
  Company Number: US-009507513-1403USA011856

PATIENT
  Age: 58 Year
  Sex: Male

DRUGS (4)
  1. FOSAMAX [Suspect]
     Indication: JOINT INJURY
     Dosage: 70 MG, QD
     Dates: start: 20121206, end: 20130403
  2. BENAZEPRIL HYDROCHLORIDE [Concomitant]
  3. METOPROLOL [Concomitant]
  4. LOVASTATIN [Concomitant]
     Dosage: UNK

REACTIONS (4)
  - Bone contusion [Not Recovered/Not Resolved]
  - Ligament injury [Not Recovered/Not Resolved]
  - Disability [Not Recovered/Not Resolved]
  - Gait disturbance [Not Recovered/Not Resolved]
